FAERS Safety Report 9728439 (Version 1)
Quarter: 2013Q4

REPORT INFORMATION
  Report Type: Spontaneous
  Country: GB (occurrence: GB)
  Receive Date: 20131204
  Receipt Date: 20131204
  Transmission Date: 20140711
  Serious: Yes (Hospitalization)
  Sender: FDA-Public Use
  Company Number: GB-NOVOPROD-393826

PATIENT
  Age: 52 Year
  Sex: Male

DRUGS (2)
  1. NOVOMIX 30 FLEXPEN [Suspect]
     Indication: TYPE 2 DIABETES MELLITUS
     Dosage: BETWEEN 8 - 12 UNITS, TWICE A DAY, DEPENDING ON GLUCOSE LEVELS
     Route: 065
     Dates: start: 201201
  2. METFORMIN [Concomitant]
     Dosage: UNK

REACTIONS (2)
  - Gastritis [Unknown]
  - Blood glucose increased [Unknown]
